FAERS Safety Report 17259016 (Version 2)
Quarter: 2020Q1

REPORT INFORMATION
  Report Type: Spontaneous
  Country: FR (occurrence: FR)
  Receive Date: 20200110
  Receipt Date: 20200115
  Transmission Date: 20200409
  Serious: Yes (Hospitalization)
  Sender: FDA-Public Use
  Company Number: FR-MYLANLABS-2020M1002658

PATIENT
  Age: 65 Year
  Sex: Male
  Weight: 72 kg

DRUGS (5)
  1. BISOPROLOL [Concomitant]
     Active Substance: BISOPROLOL
     Indication: HYPERTENSION
     Dosage: 5 MILLIGRAM, QD
     Route: 048
  2. CISPLATIN MYLAN [Suspect]
     Active Substance: CISPLATIN
     Indication: BLADDER CANCER
     Dosage: 1430 MILLIGRAM, CYCLE (70 MG/M? SOIT 130 MG SUR 1H AU J2 )
     Route: 042
     Dates: start: 20190814, end: 20190814
  3. VELBE [Suspect]
     Active Substance: VINBLASTINE SULFATE
     Indication: BLADDER CANCER
     Dosage: 5.6 MILLIGRAM, CYCLE (VINBLASTINE 3 MG/M? SOIT 5.6 MG SUR 10 MIN AU J2)
     Route: 042
     Dates: start: 20190814, end: 20190814
  4. DOXORUBICINE TEVA [Suspect]
     Active Substance: DOXORUBICIN
     Indication: BLADDER CANCER
     Dosage: 56 MILLIGRAM, CYCLE (30 MG/M? SOIT 56 MG SUR 15 MIN AU J2)
     Route: 042
     Dates: start: 20190814, end: 20190814
  5. METHOTREXATE MYLAN [Suspect]
     Active Substance: METHOTREXATE SODIUM
     Indication: BLADDER CANCER
     Dosage: 56 MILLIGRAM, CYCLE (30 MG/M? SOIT 56 MG SUR 30 MIN AU J1)
     Route: 042
     Dates: start: 20190813, end: 20190814

REACTIONS (3)
  - Hypertension [Not Recovered/Not Resolved]
  - Cardiac failure [Not Recovered/Not Resolved]
  - Electrocardiogram change [Recovered/Resolved]

NARRATIVE: CASE EVENT DATE: 20190820
